FAERS Safety Report 19051354 (Version 1)
Quarter: 2021Q1

REPORT INFORMATION
  Report Type: Spontaneous
  Country: FR (occurrence: FR)
  Receive Date: 20210324
  Receipt Date: 20210324
  Transmission Date: 20210420
  Serious: Yes (Hospitalization)
  Sender: FDA-Public Use
  Company Number: NVSC2021FR036113

PATIENT
  Age: 71 Year
  Sex: Female
  Weight: 54 kg

DRUGS (9)
  1. RIVOTRIL [Concomitant]
     Active Substance: CLONAZEPAM
     Indication: MIXED ANXIETY AND DEPRESSIVE DISORDER
     Dosage: UNK
     Route: 048
  2. OXALIPLATIN. [Suspect]
     Active Substance: OXALIPLATIN
     Indication: COLORECTAL CANCER METASTATIC
     Dosage: 85 MG/M2 (133 MG)
     Route: 065
     Dates: start: 20170201
  3. CETUXIMAB. [Suspect]
     Active Substance: CETUXIMAB
     Indication: COLORECTAL CANCER METASTATIC
     Dosage: 500 MG/M2
     Route: 042
     Dates: start: 20170301, end: 20171024
  4. FLUOROURACIL. [Suspect]
     Active Substance: FLUOROURACIL
     Indication: COLORECTAL CANCER METASTATIC
     Dosage: 2800 MG/M2 (4396 MG)
     Route: 065
     Dates: start: 20170201
  5. FLUOROURACIL. [Suspect]
     Active Substance: FLUOROURACIL
     Dosage: 2400 MG/M2 (3768 MG)
     Route: 065
     Dates: end: 20171024
  6. OXALIPLATIN. [Suspect]
     Active Substance: OXALIPLATIN
     Dosage: 64 MG/M2 (100 MG)
     Route: 065
     Dates: end: 20171024
  7. LASILIX [Concomitant]
     Active Substance: FUROSEMIDE
     Indication: PORTAL HYPERTENSION
     Dosage: UNK
     Route: 048
  8. CONTRAMAL [Concomitant]
     Active Substance: TRAMADOL HYDROCHLORIDE
     Indication: BONE PAIN
     Dosage: UNK
     Route: 048
  9. INNOHEP [Concomitant]
     Active Substance: TINZAPARIN SODIUM
     Indication: THROMBOSIS PROPHYLAXIS
     Dosage: UNK
     Route: 058

REACTIONS (4)
  - Oesophageal varices haemorrhage [Recovered/Resolved]
  - Off label use [Unknown]
  - Hepatic failure [Recovered/Resolved]
  - Pneumonia [Recovered/Resolved with Sequelae]

NARRATIVE: CASE EVENT DATE: 201711
